FAERS Safety Report 7368346-5 (Version None)
Quarter: 2011Q1

REPORT INFORMATION
  Report Type: 
  Country: None (occurrence: None)
  Receive Date: 20110323
  Receipt Date: 20110315
  Transmission Date: 20110831
  Serious: Yes (Hospitalization)
  Sender: FDA-Public Use
  Company Number: IT-TEVA-271978ISR

PATIENT
  Sex: Male
  Weight: 60 kg

DRUGS (12)
  1. LANSOPRAZOLE [Concomitant]
     Indication: GASTRITIS PROPHYLAXIS
     Route: 048
     Dates: start: 20090928
  2. PAROXETINE HYDROCHLORIDE [Concomitant]
     Indication: DEPRESSION
     Route: 048
     Dates: start: 20091022
  3. DEXAMETHASONE [Suspect]
     Indication: MULTIPLE MYELOMA
     Dates: start: 20091016
  4. ACETYLSALICYLIC ACID SRT [Concomitant]
     Indication: THROMBOSIS PROPHYLAXIS
     Route: 048
     Dates: start: 20091016
  5. LENALIDOMIDE (CC-5013) [Suspect]
     Indication: MULTIPLE MYELOMA
     Route: 048
     Dates: start: 20091016
  6. OXYCODONE [Concomitant]
     Indication: PAIN PROPHYLAXIS
     Route: 048
     Dates: start: 20100401
  7. DEXAMETHASONE [Suspect]
     Dates: start: 20110216
  8. FERROUS SULFATE TAB [Concomitant]
     Indication: ANAEMIA
     Route: 048
     Dates: start: 20090401, end: 20110209
  9. ZOLEDRONIC ACID [Concomitant]
     Indication: BONE LESION
     Route: 042
     Dates: start: 20090928
  10. METOCLOPRAMIDE [Concomitant]
     Indication: HICCUPS
     Route: 048
     Dates: start: 20091223
  11. LENALIDOMIDE (CC-5013) [Suspect]
     Route: 048
     Dates: start: 20110216
  12. PANADEINE CO [Concomitant]
     Indication: PELVIC PAIN
     Route: 048
     Dates: start: 20101118

REACTIONS (2)
  - DYSPNOEA [None]
  - SEPSIS [None]
